FAERS Safety Report 6429356-5 (Version None)
Quarter: 2009Q4

REPORT INFORMATION
  Report Type: 
  Country: None (occurrence: None)
  Receive Date: 20091105
  Receipt Date: 20090514
  Transmission Date: 20100525
  Serious: Yes (Other)
  Sender: FDA-Public Use
  Company Number: US-ABBOTT-09P-163-0573713-00

PATIENT
  Sex: Male
  Weight: 64.014 kg

DRUGS (3)
  1. KALETRA [Suspect]
     Indication: HIV INFECTION
     Route: 048
     Dates: start: 20060101
  2. TRUVADA [Concomitant]
     Indication: HIV INFECTION
     Route: 048
  3. DAPSONE [Concomitant]
     Indication: OPPORTUNISTIC INFECTION
     Route: 048

REACTIONS (5)
  - DIARRHOEA [None]
  - NAUSEA [None]
  - PERIODONTAL DISEASE [None]
  - TREMOR [None]
  - VOMITING [None]
